FAERS Safety Report 24293115 (Version 1)
Quarter: 2024Q3

REPORT INFORMATION
  Report Type: Spontaneous
  Country: US (occurrence: None)
  Receive Date: 20240906
  Receipt Date: 20240906
  Transmission Date: 20241017
  Serious: No
  Sender: DOMPE FARMACEUTICI
  Company Number: US-FARMAPROD-202308-202311-3444

PATIENT
  Sex: Female
  Weight: 88.9 kg

DRUGS (19)
  1. OXERVATE [Suspect]
     Active Substance: CENEGERMIN-BKBJ
     Indication: Neurotrophic keratopathy
     Route: 047
     Dates: start: 20231110
  2. SERUM TEARS [Concomitant]
  3. MAGNESIUM CARBONATE [Concomitant]
     Active Substance: MAGNESIUM CARBONATE
  4. CELECOXIB [Concomitant]
     Active Substance: CELECOXIB
  5. LEVOTHYROXINE SODIUM [Concomitant]
     Active Substance: LEVOTHYROXINE SODIUM
  6. THERATEARS [Concomitant]
     Active Substance: CARBOXYMETHYLCELLULOSE SODIUM
  7. SYSTANE BALANCE [Concomitant]
     Active Substance: PROPYLENE GLYCOL
  8. POTASSIUM CHLORIDE [Concomitant]
     Active Substance: POTASSIUM CHLORIDE
     Dosage: TAB PRT SR
  9. CEQUA [Concomitant]
     Active Substance: CYCLOSPORINE
  10. VITAMINS [Concomitant]
     Active Substance: VITAMINS
  11. GABAPENTIN [Concomitant]
     Active Substance: GABAPENTIN
  12. SYSTANE (HYPROMELLOSE 2910 (4000 MPA.S)) [Concomitant]
     Active Substance: HYPROMELLOSE 2910 (4000 MPA.S)
  13. VITAMIN B12 [Concomitant]
     Active Substance: CYANOCOBALAMIN
  14. AMOXICILLIN [Concomitant]
     Active Substance: AMOXICILLIN
  15. OXYCODONE HYDROCHLORIDE [Concomitant]
     Active Substance: OXYCODONE HYDROCHLORIDE
  16. ACETAMINOPHEN [Concomitant]
     Active Substance: ACETAMINOPHEN
  17. SENOKOT-S [Concomitant]
     Active Substance: DOCUSATE SODIUM\SENNOSIDES
     Dosage: 8.6MG-50MG
  18. METHOCARBAMOL [Concomitant]
     Active Substance: METHOCARBAMOL
  19. HYDROCHLOROTHIAZIDE [Concomitant]
     Active Substance: HYDROCHLOROTHIAZIDE

REACTIONS (2)
  - Wrong technique in product usage process [Unknown]
  - Tooth abscess [Unknown]
